FAERS Safety Report 18544803 (Version 1)
Quarter: 2020Q4

REPORT INFORMATION
  Report Type: Spontaneous
  Country: US (occurrence: US)
  Receive Date: 20201124
  Receipt Date: 20201124
  Transmission Date: 20210114
  Serious: Yes (Other)
  Sender: FDA-Public Use
  Company Number: None

PATIENT
  Age: 64 Year
  Sex: Female
  Weight: 68.85 kg

DRUGS (18)
  1. METHYLPHENIDATE. [Concomitant]
     Active Substance: METHYLPHENIDATE
  2. VAGIFEM [Concomitant]
     Active Substance: ESTRADIOL
  3. ST. JOHNS WORT [Concomitant]
     Active Substance: HYPERICUM PERFORATUM WHOLE
  4. METFORMIN [Concomitant]
     Active Substance: METFORMIN HYDROCHLORIDE
  5. ALLOPURINOL. [Concomitant]
     Active Substance: ALLOPURINOL
  6. GLIMEPIRIDE. [Concomitant]
     Active Substance: GLIMEPIRIDE
  7. AMBROTOSE [Concomitant]
     Active Substance: ALOE VERA LEAF\GLUCOSAMINE HYDROCHLORIDE\LARIX DECIDUA WOOD\TRAGACANTH
  8. TYLENOL [Concomitant]
     Active Substance: ACETAMINOPHEN
  9. MANNATECH SUPPLEMENTS [Concomitant]
  10. PHYTOMATRIX [Concomitant]
  11. ATORVASTATIN CALCIUM (ATORVASTATIN CALCIUM) [Suspect]
     Active Substance: ATORVASTATIN CALCIUM
     Indication: BLOOD CHOLESTEROL ABNORMAL
     Dosage: ?          QUANTITY:1 TABLET(S);?
     Route: 048
  12. CITIRIZINE [Concomitant]
  13. ONE TOUCH LANCETS AND TEST STRIPS [Concomitant]
  14. PLUS [Concomitant]
  15. MELOXICAM. [Concomitant]
     Active Substance: MELOXICAM
  16. SPORT [Concomitant]
     Active Substance: AVOBENZONE\HOMOSALATE\OCTISALATE\OCTOCRYLENE
  17. SIMVASTATIN. [Suspect]
     Active Substance: SIMVASTATIN
     Dosage: ?          QUANTITY:1 TABLET(S);?
     Route: 048
  18. VITAMIN B12 [Concomitant]
     Active Substance: CYANOCOBALAMIN

REACTIONS (4)
  - Muscle spasms [None]
  - Muscle tightness [None]
  - Musculoskeletal stiffness [None]
  - Pain [None]

NARRATIVE: CASE EVENT DATE: 20201119
